FAERS Safety Report 18184681 (Version 11)
Quarter: 2021Q4

REPORT INFORMATION
  Report Type: Report from Study
  Country: BR (occurrence: None)
  Receive Date: 20200824
  Receipt Date: 20211221
  Transmission Date: 20220303
  Serious: Yes (Hospitalization)
  Sender: FDA-Public Use
  Company Number: BR-ROCHE-2604108

PATIENT
  Age: 34 Year
  Sex: Male
  Weight: 93.3 kg

DRUGS (10)
  1. ATEZOLIZUMAB [Suspect]
     Active Substance: ATEZOLIZUMAB
     Indication: Malignant melanoma
     Dosage: DATE OF LAST DOSE (840 MG) OF ATEZOLIZUMAB PRIOR TO ADVERSE EVENT (AE) (13.01) AND SERIOUS ADVERSE E
     Route: 041
     Dates: start: 20200103, end: 20200514
  2. ATEZOLIZUMAB [Suspect]
     Active Substance: ATEZOLIZUMAB
     Indication: Metastases to central nervous system
  3. COBIMETINIB [Suspect]
     Active Substance: COBIMETINIB
     Indication: Malignant melanoma
     Dosage: DATE OF MOST RECENT DOSE OF COBIMETINIB  PRIOR TO ADVERSE EVENT (AE) ONSET: 06/MAY/2021?DATE OF LAST
     Route: 048
     Dates: start: 20191204, end: 20200514
  4. COBIMETINIB [Suspect]
     Active Substance: COBIMETINIB
     Indication: Metastases to central nervous system
  5. VEMURAFENIB [Suspect]
     Active Substance: VEMURAFENIB
     Indication: Malignant melanoma
     Dosage: DATE OF LAST DOSE OF VEMURAFENIB (720 MG) PRIOR TO ADVERSE EVENT (AE) AND SERIOUS ADVERSE EVENT (SAE
     Route: 048
     Dates: start: 20191204, end: 20200514
  6. VEMURAFENIB [Suspect]
     Active Substance: VEMURAFENIB
     Indication: Metastases to central nervous system
  7. ZOLPIDEM [Concomitant]
     Active Substance: ZOLPIDEM TARTRATE
     Indication: Insomnia
     Route: 048
     Dates: start: 20200109, end: 20200111
  8. ZOLPIDEM [Concomitant]
     Active Substance: ZOLPIDEM TARTRATE
     Route: 048
     Dates: start: 20200201
  9. DEXAMETHASONE [Concomitant]
     Active Substance: DEXAMETHASONE
     Indication: Nausea
     Route: 048
     Dates: start: 20200504, end: 20200505
  10. DEXAMETHASONE [Concomitant]
     Active Substance: DEXAMETHASONE
     Route: 048
     Dates: start: 20200506, end: 20200511

REACTIONS (1)
  - Limbic encephalitis [Not Recovered/Not Resolved]

NARRATIVE: CASE EVENT DATE: 20200507
